FAERS Safety Report 7903503-8 (Version None)
Quarter: 2011Q4

REPORT INFORMATION
  Report Type: 
  Country: None (occurrence: None)
  Receive Date: 20111107
  Receipt Date: 20111026
  Transmission Date: 20120403
  Serious: Yes (Hospitalization, Other)
  Sender: FDA-Public Use
  Company Number: ACO_27503_2011

PATIENT
  Age: 56 Year
  Sex: Female

DRUGS (3)
  1. AMPYRA [Suspect]
     Indication: GAIT DISTURBANCE
     Dosage: 10 MG, BID, ORAL
     Route: 048
     Dates: start: 20110811, end: 20111017
  2. NEURONTIN [Concomitant]
  3. GILENYA [Concomitant]

REACTIONS (4)
  - CONVULSION [None]
  - CONCUSSION [None]
  - FALL [None]
  - OPEN WOUND [None]
